FAERS Safety Report 6667455-3 (Version None)
Quarter: 2010Q2

REPORT INFORMATION
  Report Type: 
  Country: None (occurrence: None)
  Receive Date: 20100405
  Receipt Date: 20100331
  Transmission Date: 20101027
  Serious: Yes (Life-Threatening, Other)
  Sender: FDA-Public Use
  Company Number: CHPA2010DE04761

PATIENT
  Sex: Male

DRUGS (4)
  1. OTRIVEN (NCH) [Suspect]
     Indication: NASAL CONGESTION
     Dosage: 1 GTT (2 X 0.006 MG), EACH NOSTRIL, ONCE/SINGLE
     Route: 045
     Dates: start: 20100306, end: 20100306
  2. OTRIVEN (NCH) [Suspect]
     Indication: MIDDLE EAR INFLAMMATION
  3. OTRIVEN (NCH) [Suspect]
     Indication: PYREXIA
  4. PARACETAMOL [Concomitant]
     Indication: PYREXIA
     Dosage: 125 MG, ONCE/SINGLE
     Route: 054
     Dates: start: 20100306, end: 20100306

REACTIONS (5)
  - BODY TEMPERATURE DECREASED [None]
  - DRUG INTERACTION [None]
  - LOSS OF CONSCIOUSNESS [None]
  - OFF LABEL USE [None]
  - PYREXIA [None]
